FAERS Safety Report 16727574 (Version 1)
Quarter: 2019Q3

REPORT INFORMATION
  Report Type: Spontaneous
  Country: CA (occurrence: CA)
  Receive Date: 20190822
  Receipt Date: 20190822
  Transmission Date: 20191005
  Serious: Yes (Other)
  Sender: FDA-Public Use
  Company Number: CA-AUROBINDO-AUR-APL-2019-053943

PATIENT

DRUGS (4)
  1. AMITRIPTYLINE [Concomitant]
     Active Substance: AMITRIPTYLINE
     Indication: PRODUCT USED FOR UNKNOWN INDICATION
     Dosage: UNK
     Route: 065
  2. PROPRANOLOL [Suspect]
     Active Substance: PROPRANOLOL HYDROCHLORIDE
     Indication: MIGRAINE
     Dosage: UNK
     Route: 065
  3. DULOXETINE. [Suspect]
     Active Substance: DULOXETINE
     Indication: MIGRAINE
     Dosage: UNK
     Route: 065
  4. CANDESARTAN TABLETS [Suspect]
     Active Substance: CANDESARTAN
     Indication: MIGRAINE
     Dosage: UNK
     Route: 065

REACTIONS (6)
  - Crohn^s disease [Unknown]
  - Product use in unapproved indication [Unknown]
  - Food allergy [Unknown]
  - Product administered to patient of inappropriate age [Unknown]
  - Drug intolerance [Unknown]
  - Drug ineffective for unapproved indication [Unknown]
